FAERS Safety Report 10160899 (Version 1)
Quarter: 2014Q2

REPORT INFORMATION
  Report Type: Report from Study
  Country: US (occurrence: US)
  Receive Date: 20140508
  Receipt Date: 20140508
  Transmission Date: 20141212
  Serious: Yes (Hospitalization)
  Sender: FDA-Public Use
  Company Number: US-BRISTOL-MYERS SQUIBB COMPANY-20690822

PATIENT
  Age: 54 Year
  Sex: Female

DRUGS (10)
  1. METRELEPTIN [Suspect]
     Indication: LIPODYSTROPHY ACQUIRED
     Dosage: LAST DOSE PRIOR TO EVENT 24APR2014
     Dates: start: 20090724
  2. OMEPRAZOLE [Concomitant]
     Indication: GASTROOESOPHAGEAL REFLUX DISEASE
     Route: 048
     Dates: start: 2008
  3. METFORMIN [Concomitant]
     Indication: DIABETES MELLITUS
     Route: 048
     Dates: start: 20120720
  4. LEVOTHYROXINE [Concomitant]
     Indication: HYPOTHYROIDISM
     Dates: start: 20020609
  5. HYDROCHLOROTHIAZIDE [Concomitant]
     Indication: HYPERTENSION
     Dates: start: 20120924
  6. NEURONTIN [Concomitant]
     Indication: PAIN
     Dates: start: 20130506
  7. ACUPRIL [Concomitant]
     Indication: HYPERTENSION
     Dates: start: 201212
  8. HYDROCODONE + ACETAMINOPHEN [Concomitant]
     Indication: PAIN
     Dosage: 1 DF=5/325 MG
     Dates: start: 20130814
  9. BENTYL [Concomitant]
     Indication: ABDOMINAL PAIN
     Dates: start: 20130701
  10. FENOFIBRATE [Concomitant]
     Indication: HYPERTRIGLYCERIDAEMIA
     Route: 048
     Dates: start: 2005

REACTIONS (1)
  - Urosepsis [Recovering/Resolving]
